FAERS Safety Report 24799486 (Version 3)
Quarter: 2025Q1

REPORT INFORMATION
  Report Type: Spontaneous
  Country: US (occurrence: US)
  Receive Date: 20250102
  Receipt Date: 20250120
  Transmission Date: 20250409
  Serious: No
  Sender: ELI LILLY AND COMPANY
  Company Number: US-ELI_LILLY_AND_COMPANY-US202412019430

PATIENT
  Age: 40 Year
  Sex: Female

DRUGS (5)
  1. TALTZ [Suspect]
     Active Substance: IXEKIZUMAB
     Indication: Psoriatic arthropathy
     Route: 065
     Dates: start: 202408
  2. TALTZ [Suspect]
     Active Substance: IXEKIZUMAB
     Indication: Axial spondyloarthritis
  3. TALTZ [Suspect]
     Active Substance: IXEKIZUMAB
     Indication: Axial spondyloarthritis
  4. TALTZ [Suspect]
     Active Substance: IXEKIZUMAB
     Indication: Psoriasis
  5. TALTZ [Suspect]
     Active Substance: IXEKIZUMAB
     Indication: Psoriasis

REACTIONS (6)
  - Weight increased [Unknown]
  - Incorrect dose administered [Unknown]
  - Illness [Unknown]
  - Ankylosing spondylitis [Unknown]
  - Psoriatic arthropathy [Unknown]
  - Therapeutic response shortened [Unknown]
